FAERS Safety Report 25287159 (Version 1)
Quarter: 2025Q2

REPORT INFORMATION
  Report Type: Spontaneous
  Country: US (occurrence: US)
  Receive Date: 20250509
  Receipt Date: 20250509
  Transmission Date: 20250716
  Serious: Yes (Hospitalization, Other)
  Sender: Steriscience PTE
  Company Number: US-STERISCIENCE B.V.-2025-ST-000029

PATIENT
  Age: 33 Year
  Sex: Female

DRUGS (9)
  1. AMPICILLIN [Suspect]
     Active Substance: AMPICILLIN
     Indication: Evidence based treatment
     Route: 065
  2. AMPICILLIN [Suspect]
     Active Substance: AMPICILLIN
     Indication: Meningitis
  3. VANCOMYCIN [Suspect]
     Active Substance: VANCOMYCIN
     Indication: Evidence based treatment
     Route: 065
  4. VANCOMYCIN [Suspect]
     Active Substance: VANCOMYCIN
     Indication: Meningitis
  5. ACYCLOVIR [Suspect]
     Active Substance: ACYCLOVIR
     Indication: Evidence based treatment
     Route: 065
  6. ACYCLOVIR [Suspect]
     Active Substance: ACYCLOVIR
     Indication: Meningitis
  7. CEFTRIAXONE [Suspect]
     Active Substance: CEFTRIAXONE
     Indication: Evidence based treatment
     Route: 065
  8. CEFTRIAXONE [Suspect]
     Active Substance: CEFTRIAXONE
     Indication: Meningitis
  9. HYDROXYCHLOROQUINE [Concomitant]
     Active Substance: HYDROXYCHLOROQUINE
     Indication: Systemic lupus erythematosus
     Route: 065

REACTIONS (1)
  - Drug ineffective [Unknown]
